FAERS Safety Report 6762685-4 (Version None)
Quarter: 2010Q2

REPORT INFORMATION
  Report Type: 
  Country: None (occurrence: None)
  Receive Date: 20100609
  Receipt Date: 20100602
  Transmission Date: 20101027
  Serious: Yes (Hospitalization)
  Sender: FDA-Public Use
  Company Number: A0862632A

PATIENT
  Age: 71 Year
  Sex: Female
  Weight: 63.7 kg

DRUGS (4)
  1. PAZOPANIB [Suspect]
     Dosage: 800MG PER DAY
     Route: 048
     Dates: start: 20100212, end: 20100531
  2. ZOFRAN [Concomitant]
     Indication: NAUSEA
     Dosage: 8MG SINGLE DOSE
     Route: 048
     Dates: start: 20100601, end: 20100601
  3. OXYCODONE [Concomitant]
     Indication: ABDOMINAL PAIN
     Route: 048
  4. LEVAQUIN [Concomitant]
     Indication: WHITE BLOOD CELLS URINE POSITIVE
     Dosage: 500MG PER DAY
     Route: 048
     Dates: start: 20100601

REACTIONS (4)
  - DISEASE PROGRESSION [None]
  - HYPONATRAEMIA [None]
  - NAUSEA [None]
  - WHITE BLOOD CELLS URINE POSITIVE [None]
